FAERS Safety Report 9689568 (Version 3)
Quarter: 2013Q4

REPORT INFORMATION
  Report Type: Spontaneous
  Country: JP (occurrence: JP)
  Receive Date: 20131115
  Receipt Date: 20131118
  Transmission Date: 20140711
  Serious: Yes (Life-Threatening)
  Sender: FDA-Public Use
  Company Number: JP-009507513-1310JPN010277

PATIENT
  Age: 31 Year
  Sex: Female
  Weight: 51 kg

DRUGS (4)
  1. ESLAX [Suspect]
     Indication: NEUROMUSCULAR BLOCKING THERAPY
     Dosage: 60 MG, QD
     Route: 042
     Dates: start: 20131009, end: 20131009
  2. BRIDION [Suspect]
     Indication: NEUROMUSCULAR BLOCKADE REVERSAL
     Dosage: 300 MG, /1 DAY,FIRST IT WAS 100MG, LATER 200 WAS ADMINISTERED ADDITIONALLY
     Route: 042
     Dates: start: 20131009, end: 20131009
  3. FENTANYL CITRATE [Suspect]
     Dosage: DAILY DOSE UNKNOWN, ALSO REPORTED AS TOTAL 600UG 1 DAY
     Route: 042
     Dates: start: 20131009, end: 20131009
  4. PROPOFOL [Suspect]
     Dosage: DAILY DOSE UNKNOWN, 1 DAY ALSO REPORTED AS TOTAL 80 ML
     Route: 042
     Dates: start: 20131009, end: 20131009

REACTIONS (3)
  - Hypotonia [Recovered/Resolved]
  - Dyspnoea [Recovered/Resolved]
  - Muscular weakness [Recovered/Resolved]
